FAERS Safety Report 15211594 (Version 1)
Quarter: 2018Q3

REPORT INFORMATION
  Report Type: Spontaneous
  Country: US (occurrence: US)
  Receive Date: 20180702
  Receipt Date: 20180702
  Transmission Date: 20181010
  Serious: Yes (Disabling)
  Sender: FDA-Public Use
  Company Number: None

PATIENT
  Age: 45 Year
  Sex: Female
  Weight: 112.5 kg

DRUGS (1)
  1. LUPRON DEPOT [Suspect]
     Active Substance: LEUPROLIDE ACETATE
     Indication: UTERINE LEIOMYOMA
     Dosage: ?          QUANTITY:1 INJECTION(S);OTHER FREQUENCY:1 SHOT PER MONTH;?
     Route: 030
     Dates: start: 20170201, end: 20170401

REACTIONS (3)
  - Menstrual disorder [None]
  - Blood cholesterol increased [None]
  - Glycosylated haemoglobin increased [None]

NARRATIVE: CASE EVENT DATE: 20180117
